FAERS Safety Report 10602588 (Version 1)
Quarter: 2014Q4

REPORT INFORMATION
  Report Type: Other
  Country: CN (occurrence: CN)
  Receive Date: 20141124
  Receipt Date: 20141124
  Transmission Date: 20150529
  Serious: Yes (Hospitalization)
  Sender: FDA-Public Use
  Company Number: CN-ENDO PHARMACEUTICALS INC-ALLO20140024

PATIENT
  Age: 80 Year
  Sex: Male

DRUGS (3)
  1. PANAX NOTOGINSENG [Concomitant]
     Indication: PRODUCT USED FOR UNKNOWN INDICATION
     Dosage: UNKNOWN
     Route: 065
  2. ANTIHYPERTENSIVES [Concomitant]
     Active Substance: UNSPECIFIED INGREDIENT
     Indication: HYPERTENSION
     Dosage: UNKNOWN
     Route: 065
  3. ALLOPURINOL TABLETS [Suspect]
     Active Substance: ALLOPURINOL
     Indication: GOUT
     Dosage: UNKNOWN
     Route: 048

REACTIONS (2)
  - Hypofibrinogenaemia [Recovered/Resolved]
  - Purpura [Recovered/Resolved]
